FAERS Safety Report 16607866 (Version 1)
Quarter: 2019Q3

REPORT INFORMATION
  Report Type: Spontaneous
  Country: US (occurrence: US)
  Receive Date: 20190719
  Receipt Date: 20190719
  Transmission Date: 20191004
  Serious: No
  Sender: FDA-Public Use
  Company Number: None

PATIENT
  Age: 26 Year
  Sex: Female
  Weight: 107.55 kg

DRUGS (6)
  1. MULTIVITAMIN [Concomitant]
     Active Substance: VITAMINS
  2. REGLAN [Suspect]
     Active Substance: METOCLOPRAMIDE HYDROCHLORIDE
     Indication: HEADACHE
     Dates: start: 20190716, end: 20190716
  3. DIGESTION ENZYME [Concomitant]
  4. CLARITIN [Concomitant]
     Active Substance: LORATADINE
  5. PROBIOTIC [Concomitant]
     Active Substance: PROBIOTICS NOS
  6. SUDAFED [Concomitant]
     Active Substance: PSEUDOEPHEDRINE HYDROCHLORIDE

REACTIONS (5)
  - Diarrhoea [None]
  - Vomiting [None]
  - Nausea [None]
  - Weight decreased [None]
  - Mental disorder [None]

NARRATIVE: CASE EVENT DATE: 20190717
